FAERS Safety Report 5056564-0 (Version None)
Quarter: 2006Q3

REPORT INFORMATION
  Report Type: 
  Country: None (occurrence: None)
  Receive Date: 20060720
  Receipt Date: 20060706
  Transmission Date: 20061208
  Serious: Yes (Hospitalization)
  Sender: FDA-Public Use
  Company Number: FI-BOEHRINGER INGELHEIM PHARMACEUTICALS, INC.-2006-SW-00299SF

PATIENT
  Sex: Male

DRUGS (10)
  1. SIFROL TAB. 0.18 MG [Suspect]
     Indication: PARKINSON'S DISEASE
     Dosage: VARYING 0,18MG 3 X 3 AT MAXIMUM
     Route: 048
     Dates: start: 20051001, end: 20060228
  2. SIFROL TAB. 0.18 MG [Suspect]
     Dates: start: 20060301
  3. MADOPAR DEPOT [Concomitant]
     Indication: PARKINSON'S DISEASE
     Dosage: STRENGTH: 100MG LEVODOPA + 25MG BENSERAZIDE; DAILY DOSE: 400MG LEVODOPA + 100MG BENSERAZIDE
     Route: 048
     Dates: start: 19970101
  4. ZOCOR [Concomitant]
     Indication: CORONARY ARTERY DISEASE
     Route: 048
  5. ZOCOR [Concomitant]
     Indication: HYPERCHOLESTEROLAEMIA
  6. ELDEPRYL [Concomitant]
     Indication: PARKINSON'S DISEASE
     Route: 048
  7. OMNIC [Concomitant]
     Indication: BENIGN PROSTATIC HYPERPLASIA
     Route: 048
  8. FURESIS [Concomitant]
     Indication: CORONARY ARTERY DISEASE
     Route: 048
  9. CARDIOL [Concomitant]
     Indication: CORONARY ARTERY DISEASE
     Route: 048
  10. DISPERIN [Concomitant]
     Indication: CORONARY ARTERY DISEASE
     Route: 048

REACTIONS (7)
  - ERYTHEMA [None]
  - FEELING HOT [None]
  - OEDEMA PERIPHERAL [None]
  - PAIN IN EXTREMITY [None]
  - SUDDEN ONSET OF SLEEP [None]
  - SYNOVIAL RUPTURE [None]
  - VARICOSE ULCERATION [None]
